FAERS Safety Report 17475491 (Version 1)
Quarter: 2020Q1

REPORT INFORMATION
  Report Type: Spontaneous
  Country: US (occurrence: US)
  Receive Date: 20200228
  Receipt Date: 20200228
  Transmission Date: 20200409
  Serious: No
  Sender: FDA-Public Use
  Company Number: US-PFIZER INC-2020062779

PATIENT
  Age: 89 Year
  Sex: Female
  Weight: 52.61 kg

DRUGS (1)
  1. LEVOTHYROXINE SODIUM. [Suspect]
     Active Substance: LEVOTHYROXINE SODIUM
     Dosage: 25 MG, UNK

REACTIONS (2)
  - Drug hypersensitivity [Unknown]
  - Product prescribing error [Unknown]
